FAERS Safety Report 19487445 (Version 1)
Quarter: 2021Q3

REPORT INFORMATION
  Report Type: Spontaneous
  Country: US (occurrence: US)
  Receive Date: 20210702
  Receipt Date: 20210702
  Transmission Date: 20211014
  Serious: No
  Sender: FDA-Public Use
  Company Number: US-TEVA-2021-US-1911722

PATIENT
  Age: 67 Year
  Sex: Male

DRUGS (6)
  1. SILODOSIN. [Concomitant]
     Active Substance: SILODOSIN
     Route: 065
  2. ESCITALOPRAM [Concomitant]
     Active Substance: ESCITALOPRAM OXALATE
     Route: 065
  3. AMLODIPINE [Concomitant]
     Active Substance: AMLODIPINE BESYLATE
     Route: 065
  4. ATORVASTATIN [Concomitant]
     Active Substance: ATORVASTATIN
     Route: 065
  5. ALPRAZOLAM ACTAVIS/TEVA [Suspect]
     Active Substance: ALPRAZOLAM
     Route: 065
  6. SPIRONOLACTONE. [Concomitant]
     Active Substance: SPIRONOLACTONE
     Route: 065

REACTIONS (6)
  - Hyperhidrosis [Recovered/Resolved]
  - Withdrawal syndrome [Recovering/Resolving]
  - Product substitution issue [Unknown]
  - Product quality issue [Unknown]
  - Anxiety [Recovered/Resolved]
  - Tremor [Recovered/Resolved]

NARRATIVE: CASE EVENT DATE: 2021
